FAERS Safety Report 20693813 (Version 2)
Quarter: 2022Q2

REPORT INFORMATION
  Report Type: Report from Study
  Country: US (occurrence: US)
  Receive Date: 20220411
  Receipt Date: 20220512
  Transmission Date: 20220721
  Serious: No
  Sender: FDA-Public Use
  Company Number: US-BIOVITRUM-2022US00703

PATIENT
  Sex: Female

DRUGS (2)
  1. KINERET [Suspect]
     Active Substance: ANAKINRA
     Indication: Product used for unknown indication
     Dates: start: 20161220
  2. KINERET [Suspect]
     Active Substance: ANAKINRA
     Route: 058

REACTIONS (13)
  - Cold sweat [Unknown]
  - Nausea [Unknown]
  - Vomiting [Unknown]
  - Illness [Unknown]
  - Memory impairment [Unknown]
  - Fatigue [Unknown]
  - Asthenia [Unknown]
  - Hyperhidrosis [Unknown]
  - Pyrexia [Unknown]
  - Rash [Unknown]
  - Urticaria [Unknown]
  - Injection site pain [Unknown]
  - Product dose omission issue [Unknown]
